FAERS Safety Report 22065908 (Version 4)
Quarter: 2023Q2

REPORT INFORMATION
  Report Type: Report from Study
  Country: DE (occurrence: DE)
  Receive Date: 20230306
  Receipt Date: 20230606
  Transmission Date: 20230722
  Serious: Yes (Life-Threatening, Hospitalization, Other)
  Sender: FDA-Public Use
  Company Number: None

PATIENT
  Age: 15 Year

DRUGS (6)
  1. ARIPIPRAZOLE [Interacting]
     Active Substance: ARIPIPRAZOLE
     Indication: Antipsychotic therapy
     Dosage: UNKNOWN
     Route: 065
  2. LAMOTRIGINE [Interacting]
     Active Substance: LAMOTRIGINE
     Indication: Intellectual disability
     Dosage: UNKNOWN
     Route: 065
  3. MELPERONE [Interacting]
     Active Substance: MELPERONE
     Indication: Intellectual disability
     Dosage: UNKNOWN
     Route: 065
  4. PIPAMPERONE [Interacting]
     Active Substance: PIPAMPERONE
     Indication: Antipsychotic therapy
     Dosage: UNKNOWN
     Route: 065
  5. TIAPRIDE [Interacting]
     Active Substance: TIAPRIDE
     Indication: Intellectual disability
     Dosage: UNKNOWN
     Route: 065
  6. ZUCLOPENTHIXOL [Interacting]
     Active Substance: ZUCLOPENTHIXOL
     Indication: Intellectual disability
     Dosage: UNKNOWN
     Route: 065

REACTIONS (7)
  - Extrapyramidal disorder [Unknown]
  - Product use issue [Unknown]
  - Medication error [Unknown]
  - Off label use [Unknown]
  - Electrocardiogram QT prolonged [Unknown]
  - Aplastic anaemia [Unknown]
  - Drug interaction [Unknown]
